FAERS Safety Report 6153630-3 (Version None)
Quarter: 2009Q2

REPORT INFORMATION
  Report Type: 
  Country: None (occurrence: None)
  Receive Date: 20090409
  Receipt Date: 20090326
  Transmission Date: 20091009
  Serious: Yes (Hospitalization)
  Sender: FDA-Public Use
  Company Number: 2009S1005487

PATIENT
  Age: 78 Year
  Sex: Female
  Weight: 65 kg

DRUGS (10)
  1. DICLOFENAC (DICLOFENAC) [Suspect]
     Indication: OSTEOARTHRITIS
     Dosage: 75 MG;AS NEEDED;ORAL
     Route: 048
     Dates: start: 20050101
  2. FALITHROM (PHENPROCOUMON) [Suspect]
     Indication: ATRIAL FLUTTER
     Dosage: 1.5 MG;ORAL
     Route: 048
     Dates: start: 20020101
  3. ARELIX [Concomitant]
  4. RAMIPRIL [Concomitant]
  5. ATACAND [Concomitant]
  6. EFEROX /00068002/ [Concomitant]
  7. AMIODARONE [Concomitant]
  8. VERAPAMIL [Concomitant]
  9. OMEPRAZOLE [Concomitant]
  10. DIGITOXIN TAB [Concomitant]

REACTIONS (2)
  - DRUG INTERACTION [None]
  - GASTROINTESTINAL HAEMORRHAGE [None]
